FAERS Safety Report 14378689 (Version 2)
Quarter: 2018Q1

REPORT INFORMATION
  Report Type: Report from Study
  Country: US (occurrence: US)
  Receive Date: 20180112
  Receipt Date: 20180128
  Transmission Date: 20180509
  Serious: No
  Sender: FDA-Public Use
  Company Number: US-AMGEN-USASL2018002817

PATIENT
  Age: 62 Year
  Sex: Male

DRUGS (2)
  1. ENBREL [Suspect]
     Active Substance: ETANERCEPT
     Dosage: 50 MG, 2 TIMES/WK
     Route: 065
  2. ENBREL [Suspect]
     Active Substance: ETANERCEPT
     Indication: PSORIASIS
     Dosage: 50 MG, EVERY 4 TO 5 DAYS
     Route: 065
     Dates: start: 201712

REACTIONS (8)
  - Treatment noncompliance [Unknown]
  - Pain in extremity [Not Recovered/Not Resolved]
  - Lip ulceration [Not Recovered/Not Resolved]
  - Skin ulcer [Not Recovered/Not Resolved]
  - Hypophagia [Unknown]
  - Psoriasis [Recovering/Resolving]
  - Gait disturbance [Not Recovered/Not Resolved]
  - Pharyngeal ulceration [Not Recovered/Not Resolved]

NARRATIVE: CASE EVENT DATE: 201712
